FAERS Safety Report 17250181 (Version 6)
Quarter: 2020Q4

REPORT INFORMATION
  Report Type: Spontaneous
  Country: US (occurrence: US)
  Receive Date: 20200109
  Receipt Date: 20201124
  Transmission Date: 20210113
  Serious: No
  Sender: FDA-Public Use
  Company Number: US-HTU-2019US019879

PATIENT
  Age: 79 Year
  Sex: Female

DRUGS (5)
  1. VALCHLOR [Suspect]
     Active Substance: MECHLORETHAMINE
     Indication: CUTANEOUS T-CELL LYMPHOMA
     Dosage: UNK, 3/WEEK
     Route: 061
     Dates: start: 201911
  2. CERAVE [Concomitant]
     Indication: DRY SKIN
     Dosage: UNK, BID
  3. CERAVE [Concomitant]
     Indication: ECZEMA
  4. ACITRETIN. [Concomitant]
     Active Substance: ACITRETIN
  5. VALCHLOR [Suspect]
     Active Substance: MECHLORETHAMINE
     Dosage: UNK, QOD
     Route: 061
     Dates: end: 2020

REACTIONS (4)
  - Condition aggravated [Not Recovered/Not Resolved]
  - Off label use [Unknown]
  - Rash macular [Recovered/Resolved]
  - Rash [Recovered/Resolved]

NARRATIVE: CASE EVENT DATE: 202003
